FAERS Safety Report 17750490 (Version 1)
Quarter: 2020Q2

REPORT INFORMATION
  Report Type: Spontaneous
  Country: US (occurrence: US)
  Receive Date: 20200506
  Receipt Date: 20200506
  Transmission Date: 20200714
  Serious: No
  Sender: FDA-Public Use
  Company Number: US-LEXICON PHARMACEUTICALS, INC-20-1606-00331

PATIENT
  Age: 61 Year
  Sex: Male

DRUGS (1)
  1. XERMELO [Suspect]
     Active Substance: TELOTRISTAT ETHYL
     Indication: CARCINOID SYNDROME
     Dosage: NOT REPORTED
     Dates: start: 201805

REACTIONS (2)
  - Constipation [Not Recovered/Not Resolved]
  - Back pain [Unknown]
